FAERS Safety Report 5703663-3 (Version None)
Quarter: 2008Q2

REPORT INFORMATION
  Report Type: 
  Country: None (occurrence: None)
  Receive Date: 20080413
  Receipt Date: 20080402
  Transmission Date: 20081010
  Serious: Yes (Hospitalization)
  Sender: FDA-Public Use
  Company Number: PHHO2008US04352

PATIENT
  Age: 24 Year
  Sex: Female
  Weight: 49.8 kg

DRUGS (2)
  1. MYCOPHENOLATE MOFETIL [Suspect]
     Indication: HEART TRANSPLANT
     Dosage: 1500 MG, BID
     Route: 048
     Dates: start: 20080319
  2. NEORAL [Suspect]
     Indication: HEART TRANSPLANT
     Dosage: 125 MG, BID
     Route: 048
     Dates: start: 20080319, end: 20080331

REACTIONS (2)
  - HEADACHE [None]
  - PHOTOPHOBIA [None]
